FAERS Safety Report 5662825-4 (Version None)
Quarter: 2008Q1

REPORT INFORMATION
  Report Type: 
  Country: None (occurrence: None)
  Receive Date: 20080313
  Receipt Date: 20080306
  Transmission Date: 20080703
  Serious: Yes (Hospitalization)
  Sender: FDA-Public Use
  Company Number: BR-AVENTIS-200713006GDDC

PATIENT
  Sex: Male
  Weight: 3 kg

DRUGS (7)
  1. LANTUS [Suspect]
     Route: 015
     Dates: start: 20070322, end: 20070327
  2. LANTUS [Suspect]
     Route: 015
     Dates: start: 20070328
  3. LANTUS [Suspect]
     Route: 015
  4. DAONIL [Concomitant]
     Dosage: DOSE QUANTITY: 2
     Route: 015
     Dates: end: 20070301
  5. METFORMIN [Concomitant]
     Dosage: DOSE QUANTITY: 1
     Route: 015
     Dates: end: 20070301
  6. HUMALOG [Concomitant]
     Route: 015
     Dates: start: 20070322
  7. FOLIC ACID [Concomitant]
     Route: 015

REACTIONS (2)
  - HYPOGLYCAEMIA [None]
  - JAUNDICE [None]
